FAERS Safety Report 17248657 (Version 1)
Quarter: 2020Q1

REPORT INFORMATION
  Report Type: Spontaneous
  Country: US (occurrence: US)
  Receive Date: 20200108
  Receipt Date: 20200108
  Transmission Date: 20200409
  Serious: No
  Sender: FDA-Public Use
  Company Number: US-BAYER-2020-003470

PATIENT
  Age: 10 Year
  Sex: Male

DRUGS (1)
  1. CLARITIN [Suspect]
     Active Substance: LORATADINE
     Dosage: 10 DF, ONCE
     Route: 048
     Dates: start: 202001

REACTIONS (2)
  - Accidental exposure to product by child [Unknown]
  - Tremor [Unknown]

NARRATIVE: CASE EVENT DATE: 202001
